FAERS Safety Report 20881800 (Version 1)
Quarter: 2022Q2

REPORT INFORMATION
  Report Type: Spontaneous
  Country: AU (occurrence: AU)
  Receive Date: 20220527
  Receipt Date: 20220527
  Transmission Date: 20220721
  Serious: Yes (Other)
  Sender: FDA-Public Use
  Company Number: AU-SUN PHARMACEUTICAL INDUSTRIES LTD-2022RR-338208

PATIENT
  Age: 47 Year
  Sex: Female

DRUGS (9)
  1. GABAPENTIN [Suspect]
     Active Substance: GABAPENTIN
     Indication: Headache
     Dosage: UNK
     Route: 065
  2. TOPIRAMATE [Suspect]
     Active Substance: TOPIRAMATE
     Indication: Headache
     Dosage: UNK
     Route: 065
  3. CELECOXIB [Suspect]
     Active Substance: CELECOXIB
     Indication: Headache
     Dosage: 100 MILLIGRAM, DAILY
     Route: 065
  4. INDOMETHACIN [Suspect]
     Active Substance: INDOMETHACIN
     Indication: Headache
     Dosage: 50 MILLIGRAM, UNK
     Route: 048
  5. INDOMETHACIN [Suspect]
     Active Substance: INDOMETHACIN
     Dosage: 75 MILLIGRAM, DAILY
     Route: 048
  6. ACETAZOLAMIDE [Suspect]
     Active Substance: ACETAZOLAMIDE
     Indication: Headache
     Dosage: UNK
     Route: 065
  7. VERAPAMIL [Suspect]
     Active Substance: VERAPAMIL HYDROCHLORIDE
     Indication: Headache
     Dosage: UNK
     Route: 065
  8. AMITRIPTYLINE [Suspect]
     Active Substance: AMITRIPTYLINE
     Indication: Headache
     Dosage: UNK
     Route: 065
  9. MELATONIN [Suspect]
     Active Substance: MELATONIN
     Indication: Headache
     Dosage: UNK
     Route: 065

REACTIONS (4)
  - Acute kidney injury [Unknown]
  - Adverse drug reaction [Unknown]
  - Drug ineffective [Unknown]
  - Renal impairment [Recovered/Resolved]
